FAERS Safety Report 26059833 (Version 1)
Quarter: 2025Q4

REPORT INFORMATION
  Report Type: Spontaneous
  Country: US (occurrence: US)
  Receive Date: 20251118
  Receipt Date: 20251118
  Transmission Date: 20260117
  Serious: No
  Sender: INCYTE
  Company Number: US-INCYTE CORPORATION-2025IN012426

PATIENT
  Age: 53 Year

DRUGS (1)
  1. JAKAFI [Suspect]
     Active Substance: RUXOLITINIB
     Indication: Polycythaemia vera
     Dosage: 5MG BID ON MWF AND 5MG QD ON TUE, THUR, SAT, AND  SUNDAY.

REACTIONS (1)
  - Off label use [Unknown]
